FAERS Safety Report 5017630-9 (Version None)
Quarter: 2006Q2

REPORT INFORMATION
  Report Type: 
  Country: None (occurrence: None)
  Receive Date: 20060604
  Receipt Date: 20060524
  Transmission Date: 20061013
  Serious: Yes (Other)
  Sender: FDA-Public Use
  Company Number: US-ABBOTT-06P-163-0334352-00

PATIENT
  Age: 20 Year
  Sex: Female

DRUGS (1)
  1. NIMBEX [Suspect]
     Indication: CONVULSION
     Route: 042
     Dates: start: 20060524, end: 20060524

REACTIONS (3)
  - LOSS OF CONSCIOUSNESS [None]
  - MYDRIASIS [None]
  - UNRESPONSIVE TO PAIN STIMULI [None]
